FAERS Safety Report 4787376-0 (Version None)
Quarter: 2005Q3

REPORT INFORMATION
  Report Type: 
  Country: None (occurrence: None)
  Receive Date: 20050926
  Receipt Date: 20050805
  Transmission Date: 20060218
  Serious: No
  Sender: FDA-Public Use
  Company Number: 216762

PATIENT
  Sex: Male

DRUGS (4)
  1. AVASTIN [Suspect]
  2. FLUOROURACIL [Concomitant]
  3. LEUCOVORIN (LEUCOVORING CALCIUM) [Concomitant]
  4. OXALIPLATIN (OXALIPLATIN) [Concomitant]

REACTIONS (1)
  - PREGNANCY OF PARTNER [None]
